FAERS Safety Report 17257491 (Version 5)
Quarter: 2022Q1

REPORT INFORMATION
  Report Type: Spontaneous
  Country: US (occurrence: US)
  Receive Date: 20200110
  Receipt Date: 20220309
  Transmission Date: 20220423
  Serious: No
  Sender: FDA-Public Use
  Company Number: US-PFIZER INC-2020010453

PATIENT
  Age: 57 Year
  Sex: Male
  Weight: 82 kg

DRUGS (13)
  1. XELJANZ XR [Suspect]
     Active Substance: TOFACITINIB CITRATE
     Indication: Rheumatoid arthritis
     Dosage: 11 MG, DAILY
     Route: 048
     Dates: start: 201905, end: 2019
  2. XELJANZ XR [Suspect]
     Active Substance: TOFACITINIB CITRATE
     Dosage: 11 MG, DAILY
     Route: 048
     Dates: start: 201908
  3. OMEPRAZOLE [Concomitant]
     Active Substance: OMEPRAZOLE
     Dosage: 20 MG, UNK
  4. VITAMIN D3 [Concomitant]
     Active Substance: CHOLECALCIFEROL
     Dosage: 400 IU, UNK
  5. RESTASIS [Concomitant]
     Active Substance: CYCLOSPORINE
     Dosage: UNK
  6. PREDNISONE [Concomitant]
     Active Substance: PREDNISONE
     Dosage: 10 MG, UNK
  7. METHOTREXATE [Concomitant]
     Active Substance: METHOTREXATE
     Dosage: 2.5 MG, UNK
  8. LOSARTAN POTASSIUM [Concomitant]
     Active Substance: LOSARTAN POTASSIUM
     Dosage: 100 MG, UNK
  9. ACETAMINOPHEN\HYDROCODONE [Concomitant]
     Active Substance: ACETAMINOPHEN\HYDROCODONE
     Dosage: UNK
  10. GABAPENTIN [Concomitant]
     Active Substance: GABAPENTIN
     Dosage: 100 MG, UNK
  11. DOXYCYCLINE [Concomitant]
     Active Substance: DOXYCYCLINE
     Dosage: 100 MG, UNK
  12. CELEBREX [Concomitant]
     Active Substance: CELECOXIB
     Dosage: 100 MG, UNK
  13. ATORVASTATIN CALCIUM [Concomitant]
     Active Substance: ATORVASTATIN CALCIUM
     Dosage: 10 MG, UNK

REACTIONS (4)
  - Weight increased [Unknown]
  - Feeling abnormal [Unknown]
  - Pruritus [Unknown]
  - Movement disorder [Unknown]
